FAERS Safety Report 7647898-1 (Version None)
Quarter: 2011Q3

REPORT INFORMATION
  Report Type: 
  Country: None (occurrence: None)
  Receive Date: 20110801
  Receipt Date: 20110706
  Transmission Date: 20111222
  Serious: No
  Sender: FDA-Public Use
  Company Number: US-ABBOTT-11P-163-0837264-00

PATIENT
  Sex: Female
  Weight: 54.48 kg

DRUGS (5)
  1. UNKNOWN PROTON PUMP INHIBITOR [Concomitant]
     Indication: PRODUCT USED FOR UNKNOWN INDICATION
  2. UNKNOWN HIGH BLOOD PRESSURE MEDICATION [Concomitant]
     Indication: PRODUCT USED FOR UNKNOWN INDICATION
  3. CHOLESTYRAMINE [Concomitant]
     Indication: DIARRHOEA
  4. CREON [Suspect]
     Indication: PANCREATECTOMY
  5. TPN [Concomitant]
     Indication: PRODUCT USED FOR UNKNOWN INDICATION
     Dosage: 14 HOURS PER NIGHT

REACTIONS (3)
  - ONYCHOMADESIS [None]
  - OEDEMA PERIPHERAL [None]
  - GOUT [None]
